FAERS Safety Report 21924455 (Version 1)
Quarter: 2023Q1

REPORT INFORMATION
  Report Type: Spontaneous
  Country: CH (occurrence: CH)
  Receive Date: 20230130
  Receipt Date: 20230130
  Transmission Date: 20230417
  Serious: Yes (Other)
  Sender: FDA-Public Use
  Company Number: CH-SUNPHARMA-2023R1-375008AA

PATIENT
  Age: 61 Year
  Sex: Female

DRUGS (4)
  1. TACROLIMUS [Suspect]
     Active Substance: TACROLIMUS
     Indication: Stem cell transplant
     Dosage: UNK
     Route: 065
  2. MYCOPHENOLATE MOFETIL [Suspect]
     Active Substance: MYCOPHENOLATE MOFETIL
     Indication: Stem cell transplant
     Dosage: UNK
     Route: 065
  3. PREDNISONE [Suspect]
     Active Substance: PREDNISONE
     Indication: Graft versus host disease
     Dosage: UNK
     Route: 065
  4. CYCLOPHOSPHAMIDE [Suspect]
     Active Substance: CYCLOPHOSPHAMIDE
     Indication: Stem cell transplant
     Dosage: UNK
     Route: 065

REACTIONS (5)
  - Kaposi^s sarcoma [Unknown]
  - Human herpes virus 8 test positive [Unknown]
  - Castleman^s disease [Unknown]
  - Infection reactivation [Unknown]
  - Graft versus host disease [Unknown]
